FAERS Safety Report 18820645 (Version 1)
Quarter: 2021Q1

REPORT INFORMATION
  Report Type: Spontaneous
  Country: US (occurrence: US)
  Receive Date: 20210202
  Receipt Date: 20210202
  Transmission Date: 20210419
  Serious: No
  Sender: FDA-Public Use
  Company Number: US-CIPLA LTD.-2021US00195

PATIENT

DRUGS (3)
  1. SALBUTAMOL [Suspect]
     Active Substance: ALBUTEROL
     Dosage: UNK, PUFFS
     Dates: start: 20201229
  2. SALBUTAMOL [Suspect]
     Active Substance: ALBUTEROL
     Indication: CHRONIC OBSTRUCTIVE PULMONARY DISEASE
     Dosage: UNK, TWO PUFFS EVERY SIX HOURS AS NEEDED (PRN)
     Dates: start: 2020
  3. SALBUTAMOL [Suspect]
     Active Substance: ALBUTEROL
     Dosage: UNK, PUFFS
     Dates: start: 20201229, end: 20210107

REACTIONS (7)
  - Device defective [Unknown]
  - Device malfunction [Unknown]
  - Incorrect dose administered [Not Recovered/Not Resolved]
  - Drug dose omission by device [Unknown]
  - Product container seal issue [Unknown]
  - Product substitution issue [Unknown]
  - Device delivery system issue [Unknown]

NARRATIVE: CASE EVENT DATE: 20201228
